FAERS Safety Report 13788111 (Version 5)
Quarter: 2021Q2

REPORT INFORMATION
  Report Type: Spontaneous
  Country: CA (occurrence: CA)
  Receive Date: 20170725
  Receipt Date: 20210525
  Transmission Date: 20210716
  Serious: Yes (Other)
  Sender: FDA-Public Use
  Company Number: CA-PFIZER INC-2016469372

PATIENT
  Age: 58 Year
  Sex: Male

DRUGS (22)
  1. SOMAVERT [Suspect]
     Active Substance: PEGVISOMANT
     Indication: ACROMEGALY
     Dosage: 30 MG, 2X/WEEK
     Route: 058
     Dates: start: 201511
  2. SYNTHROID [Concomitant]
     Active Substance: LEVOTHYROXINE SODIUM
     Dosage: 0.2 MG, DAILY
     Route: 048
     Dates: start: 2014
  3. JARDIANCE [Concomitant]
     Active Substance: EMPAGLIFLOZIN
     Indication: DIABETES MELLITUS
     Dosage: 25 MG, 1X/DAY
     Route: 048
     Dates: start: 20170713
  4. D TABS [Concomitant]
     Active Substance: CHOLECALCIFEROL
     Dosage: 10000 IU, WEEKLY
     Route: 048
     Dates: start: 2015
  5. DEPO TESTOSTERONE [Concomitant]
     Active Substance: TESTOSTERONE
     Dosage: 75 MG, WEEKLY
     Route: 058
     Dates: start: 2014
  6. OLMETEC [Concomitant]
     Active Substance: OLMESARTAN MEDOXOMIL
     Dosage: 20 MG/12.5 MG, 1X/DAY
     Route: 048
     Dates: start: 2009
  7. PRO GLYBURIDE [Concomitant]
     Indication: DIABETES MELLITUS
     Dosage: 5 MG, 2X/DAY
     Route: 048
     Dates: start: 2016
  8. ASPIRIN [ACETYLSALICYLIC ACID] [Concomitant]
     Active Substance: ASPIRIN
     Dosage: 81 MG, DAILY
     Dates: start: 2009
  9. TESTOSTERONE. [Concomitant]
     Active Substance: TESTOSTERONE
     Dosage: 25 MG/WEEK ONCE A WEEK AND 18 MG/WEEK ONCE A WEEK
  10. SYNTHROID [Concomitant]
     Active Substance: LEVOTHYROXINE SODIUM
     Dosage: 200 UG, UNK
     Route: 048
  11. VITAMIN D NOS [Concomitant]
     Active Substance: VITAMIN D NOS
     Dosage: 10000 IU, WEEKLY
  12. PRO?METFORMIN [Concomitant]
     Active Substance: METFORMIN HYDROCHLORIDE
     Dosage: 850 MG, 3X/DAY
     Route: 048
  13. SOMATULINE [LANREOTIDE] [Concomitant]
     Active Substance: LANREOTIDE
     Dosage: 120 MG, MONTHLY (EVERY 4 WEEKS)
     Route: 030
     Dates: start: 2014
  14. PRO?METFORMIN [Concomitant]
     Active Substance: METFORMIN HYDROCHLORIDE
     Indication: DIABETES MELLITUS
     Dosage: 850 MG, 2X/DAY
     Route: 048
     Dates: start: 2016
  15. GLUCOZIDE [GLICLAZIDE] [Concomitant]
     Dosage: 30 MG, INCREASED TO 3 TIMES IN THE MORNING
  16. SOMAVERT [Suspect]
     Active Substance: PEGVISOMANT
     Dosage: 30 MG, DAILY
     Route: 058
     Dates: start: 2019
  17. APO ROSUVASTATIN [Concomitant]
     Active Substance: ROSUVASTATIN CALCIUM
     Dosage: 20 MG, 1X/DAY
     Route: 048
     Dates: start: 2009
  18. VICTOZA [Concomitant]
     Active Substance: LIRAGLUTIDE
     Indication: DIABETES MELLITUS
     Dosage: 1.8 MG, 1X/DAY
     Route: 058
     Dates: start: 2017
  19. SOMAVERT [Suspect]
     Active Substance: PEGVISOMANT
     Indication: PITUITARY TUMOUR BENIGN
     Dosage: 30 MG, WEEKLY
     Route: 058
     Dates: start: 201607, end: 2016
  20. SOMAVERT [Suspect]
     Active Substance: PEGVISOMANT
     Indication: INSULIN-LIKE GROWTH FACTOR ABNORMAL
     Dosage: 30 MG, 2X/WEEK
     Route: 058
     Dates: start: 20160715, end: 201903
  21. SOMAVERT [Suspect]
     Active Substance: PEGVISOMANT
     Dosage: 30 MG, 3X/WEEK
     Route: 058
     Dates: start: 201903, end: 201907
  22. SOMAVERT [Suspect]
     Active Substance: PEGVISOMANT
     Dosage: 30 MG, 4X/WEEK
     Route: 058
     Dates: start: 201907, end: 2019

REACTIONS (5)
  - Off label use [Unknown]
  - Product use issue [Unknown]
  - Amnesia [Unknown]
  - Insulin-like growth factor increased [Unknown]
  - Diabetes mellitus inadequate control [Recovered/Resolved]

NARRATIVE: CASE EVENT DATE: 20160715
